FAERS Safety Report 5036116-9 (Version None)
Quarter: 2006Q2

REPORT INFORMATION
  Report Type: 
  Country: None (occurrence: None)
  Receive Date: 20060601
  Receipt Date: 20060420
  Transmission Date: 20061013
  Serious: No
  Sender: FDA-Public Use
  Company Number: US200604003406

PATIENT
  Sex: Female

DRUGS (3)
  1. CYMBALTA [Suspect]
     Indication: NERVOUSNESS
     Dosage: SEE IMAGE
     Dates: start: 20060405
  2. CYMBALTA [Suspect]
     Dates: start: 20060406
  3. CYMBALTA [Suspect]
     Dates: start: 20060420

REACTIONS (8)
  - BURNING SENSATION [None]
  - DRY SKIN [None]
  - ERYTHEMA [None]
  - FATIGUE [None]
  - FEELING COLD [None]
  - FEELING HOT [None]
  - FLUSHING [None]
  - PARAESTHESIA [None]
